FAERS Safety Report 18608259 (Version 2)
Quarter: 2020Q4

REPORT INFORMATION
  Report Type: Report from Study
  Country: CA (occurrence: CA)
  Receive Date: 20201212
  Receipt Date: 20201222
  Transmission Date: 20210114
  Serious: Yes (Other)
  Sender: FDA-Public Use
  Company Number: PHHY2019CA023529

PATIENT
  Sex: Female

DRUGS (1)
  1. GILENYA [Suspect]
     Active Substance: FINGOLIMOD HYDROCHLORIDE
     Indication: RELAPSING-REMITTING MULTIPLE SCLEROSIS
     Dosage: 1 DF, QD
     Route: 048
     Dates: start: 20130828, end: 20190221

REACTIONS (5)
  - Expanded disability status scale score increased [Unknown]
  - Central nervous system lesion [Unknown]
  - Drug ineffective [Unknown]
  - Prescribed underdose [Unknown]
  - Laboratory test abnormal [Unknown]
